FAERS Safety Report 13840826 (Version 1)
Quarter: 2017Q3

REPORT INFORMATION
  Report Type: Spontaneous
  Country: US (occurrence: US)
  Receive Date: 20170807
  Receipt Date: 20170807
  Transmission Date: 20171127
  Serious: No
  Sender: FDA-Public Use
  Company Number: US-TEVA-794355ACC

PATIENT
  Age: 14 Year
  Sex: Female
  Weight: 37.23 kg

DRUGS (1)
  1. PLAN B ONE-STEP [Suspect]
     Active Substance: LEVONORGESTREL
     Indication: POST COITAL CONTRACEPTION
     Dates: start: 20170720, end: 20170720

REACTIONS (5)
  - Nausea [Recovered/Resolved]
  - Vaginal haemorrhage [Not Recovered/Not Resolved]
  - Prescription drug used without a prescription [Unknown]
  - Abdominal pain upper [Unknown]
  - Intentional product misuse [Unknown]

NARRATIVE: CASE EVENT DATE: 20170721
